FAERS Safety Report 12791719 (Version 1)
Quarter: 2016Q3

REPORT INFORMATION
  Report Type: Report from Study
  Country: CA (occurrence: CA)
  Receive Date: 20160929
  Receipt Date: 20160929
  Transmission Date: 20161109
  Serious: Yes (Other)
  Sender: FDA-Public Use
  Company Number: CA-AMGEN-CANSL2016130592

PATIENT
  Age: 85 Year
  Sex: Female

DRUGS (9)
  1. METOPROLOL. [Concomitant]
     Active Substance: METOPROLOL
  2. FOLIC ACID. [Concomitant]
     Active Substance: FOLIC ACID
  3. ATORVASTATIN [Concomitant]
     Active Substance: ATORVASTATIN
  4. POTASSIUM [Concomitant]
     Active Substance: POTASSIUM
  5. CALCIUM [Concomitant]
     Active Substance: CALCIUM
  6. PANTOPRAZOLE [Concomitant]
     Active Substance: PANTOPRAZOLE SODIUM
  7. RAMIPRIL. [Concomitant]
     Active Substance: RAMIPRIL
  8. HCTZ [Concomitant]
     Active Substance: HYDROCHLOROTHIAZIDE
  9. PROLIA [Suspect]
     Active Substance: DENOSUMAB
     Indication: PRODUCT USED FOR UNKNOWN INDICATION
     Dosage: 60 MG/ML, UNK
     Route: 065
     Dates: start: 20150302

REACTIONS (4)
  - Abdominal pain [Unknown]
  - Cholelithiasis [Unknown]
  - Gastrointestinal disorder [Unknown]
  - Biliary colic [Unknown]

NARRATIVE: CASE EVENT DATE: 201609
